FAERS Safety Report 8593871-9 (Version None)
Quarter: 2012Q3

REPORT INFORMATION
  Report Type: 
  Country: None (occurrence: None)
  Receive Date: 20120814
  Receipt Date: 20120724
  Transmission Date: 20120928
  Serious: No
  Sender: FDA-Public Use
  Company Number: US-ASTRAZENECA-2012SE52927

PATIENT
  Age: 43 Year
  Sex: Male

DRUGS (2)
  1. SEROQUEL XR [Suspect]
     Indication: ANXIETY
     Route: 048
     Dates: start: 20120401
  2. SEROQUEL XR [Suspect]
     Indication: STRESS
     Route: 048
     Dates: start: 20120401

REACTIONS (6)
  - FATIGUE [None]
  - LETHARGY [None]
  - DEPRESSION [None]
  - OFF LABEL USE [None]
  - INTENTIONAL DRUG MISUSE [None]
  - BRADYPHRENIA [None]
